FAERS Safety Report 4309983-1 (Version None)
Quarter: 2004Q1

REPORT INFORMATION
  Report Type: 
  Country: None (occurrence: None)
  Receive Date: 20040227
  Receipt Date: 20031201
  Transmission Date: 20041129
  Serious: No
  Sender: FDA-Public Use
  Company Number: FABR-10390

PATIENT
  Age: 47 Year
  Sex: Female
  Weight: 107 kg

DRUGS (1)
  1. FABRAZYME [Suspect]
     Indication: FABRY'S DISEASE
     Dosage: 1 MG/KG Q2WKS IV
     Route: 042
     Dates: start: 20031020

REACTIONS (3)
  - RHINORRHOEA [None]
  - THROAT IRRITATION [None]
  - THROAT TIGHTNESS [None]
